FAERS Safety Report 5426328-4 (Version None)
Quarter: 2007Q3

REPORT INFORMATION
  Report Type: 
  Country: None (occurrence: None)
  Receive Date: 20070827
  Receipt Date: 20070820
  Transmission Date: 20080115
  Serious: Yes (Hospitalization)
  Sender: FDA-Public Use
  Company Number: CH-SANOFI-SYNTHELABO-A01200709242

PATIENT
  Age: 81 Year
  Sex: Female

DRUGS (1)
  1. ELOXATIN [Suspect]
     Dosage: UNK
     Route: 065

REACTIONS (4)
  - ASTHENIA [None]
  - EYELID PTOSIS [None]
  - IIIRD NERVE PARESIS [None]
  - VISION BLURRED [None]
